FAERS Safety Report 9116470 (Version 2)
Quarter: 2013Q1

REPORT INFORMATION
  Report Type: Report from Study
  Country: BR (occurrence: BR)
  Receive Date: 20130225
  Receipt Date: 20130306
  Transmission Date: 20140127
  Serious: Yes (Hospitalization, Other)
  Sender: FDA-Public Use
  Company Number: PHHO2013BR002800

PATIENT
  Age: 48 Year
  Sex: Female
  Weight: 45 kg

DRUGS (7)
  1. AFINITOR [Suspect]
     Indication: PANCREATIC NEUROENDOCRINE TUMOUR
     Dosage: 10 MG, QD
     Route: 048
     Dates: start: 20120606, end: 20130202
  2. OXYCODONE [Concomitant]
     Indication: PAIN
     Dosage: 10 MG, 8/8H
     Dates: start: 201201, end: 20130201
  3. AMITRIPTYLINE [Concomitant]
     Indication: DEPRESSION
     Dosage: 25 MG, QD
     Dates: end: 20130201
  4. DIPYRONE [Concomitant]
     Indication: PAIN
     Dosage: 1 G, 6/6H
     Dates: start: 201201, end: 20130201
  5. GABAPENTIN [Concomitant]
     Indication: PAIN
     Dosage: 300 MG, 12/12H
     Dates: start: 20120728, end: 20130201
  6. OMEPRAZOLE [Concomitant]
     Indication: PROPHYLAXIS
     Dosage: 20 MG, QD
     Dates: start: 200901, end: 20130201
  7. LACTULOSE [Concomitant]
     Indication: CONSTIPATION
     Dosage: 20 ML, QD
     Dates: end: 20130201

REACTIONS (6)
  - Herpes simplex encephalitis [Unknown]
  - Psychotic disorder [Unknown]
  - Confusional state [Not Recovered/Not Resolved]
  - Enterobacter infection [Unknown]
  - Urinary tract infection [Unknown]
  - Hypokalaemia [Unknown]
